FAERS Safety Report 10052279 (Version 2)
Quarter: 2014Q2

REPORT INFORMATION
  Report Type: Spontaneous
  Country: NL (occurrence: NL)
  Receive Date: 20140402
  Receipt Date: 20140404
  Transmission Date: 20141212
  Serious: Yes (Hospitalization)
  Sender: FDA-Public Use
  Company Number: NL-JNJFOC-20140316310

PATIENT
  Age: 70 Year
  Sex: Female

DRUGS (8)
  1. REMICADE [Suspect]
     Indication: PRODUCT USED FOR UNKNOWN INDICATION
     Route: 042
     Dates: start: 20140306
  2. BENZOCAINE [Suspect]
     Indication: PRODUCT USED FOR UNKNOWN INDICATION
     Route: 065
  3. SPIRONOLACTON [Concomitant]
     Route: 048
  4. PARACETAMOL [Concomitant]
     Route: 048
  5. METOPROLOL SUCCINATE [Concomitant]
     Route: 048
  6. VALSARTAN [Concomitant]
     Route: 048
  7. LERCANIDIPINE HYDROCHLORIDE [Concomitant]
     Route: 048
  8. KOELZALF FNA [Concomitant]
     Route: 003
     Dates: start: 20140207

REACTIONS (5)
  - Hypersensitivity [Unknown]
  - Chills [Unknown]
  - Headache [Unknown]
  - Syncope [Unknown]
  - Infusion related reaction [Unknown]
